FAERS Safety Report 7546973-X (Version None)
Quarter: 2011Q2

REPORT INFORMATION
  Report Type: 
  Country: None (occurrence: None)
  Receive Date: 20110607
  Receipt Date: 20110525
  Transmission Date: 20111010
  Serious: Yes (Hospitalization)
  Sender: FDA-Public Use
  Company Number: 11-145

PATIENT
  Age: 49 Year
  Sex: Female

DRUGS (5)
  1. AMITRIPTYLINE HCL [Suspect]
     Dosage: 420 MG ORAL
     Route: 048
     Dates: start: 20100101
  2. DIAZEPAM [Suspect]
     Dosage: 26 MG ORAL
     Route: 048
     Dates: start: 20100101
  3. MEPERIDINE HCL [Suspect]
     Dosage: 300 MG ORAL
     Route: 048
     Dates: start: 20100101
  4. NIZATIDINE [Suspect]
     Dosage: 1.2 G ORAL
     Route: 048
     Dates: start: 20100101
  5. IBUROFEN [Suspect]
     Dosage: 120 MG ORAL
     Route: 048
     Dates: start: 20100101

REACTIONS (5)
  - RESPIRATORY DISTRESS [None]
  - MULTIPLE DRUG OVERDOSE INTENTIONAL [None]
  - SOMNOLENCE [None]
  - HYPOTENSION [None]
  - DEPRESSED LEVEL OF CONSCIOUSNESS [None]
